FAERS Safety Report 12970711 (Version 2)
Quarter: 2016Q4

REPORT INFORMATION
  Report Type: Report from Study
  Country: IT (occurrence: IT)
  Receive Date: 20161123
  Receipt Date: 20161202
  Transmission Date: 20170207
  Serious: Yes (Other)
  Sender: FDA-Public Use
  Company Number: IT-ALLERGAN-1677579US

PATIENT
  Age: 33 Year
  Sex: Female
  Weight: 50 kg

DRUGS (2)
  1. ESCITALOPRAM OXALATE UNK [Suspect]
     Active Substance: ESCITALOPRAM OXALATE
     Indication: PANIC DISORDER
     Route: 048
  2. ESCITALOPRAM OXALATE UNK [Suspect]
     Active Substance: ESCITALOPRAM OXALATE
     Indication: OVERDOSE

REACTIONS (3)
  - Asthenia [Recovering/Resolving]
  - Overdose [Unknown]
  - Drug abuse [Recovering/Resolving]

NARRATIVE: CASE EVENT DATE: 20160916
